FAERS Safety Report 5337495-5 (Version None)
Quarter: 2007Q2

REPORT INFORMATION
  Report Type: 
  Country: None (occurrence: None)
  Receive Date: 20070529
  Receipt Date: 20070518
  Transmission Date: 20071010
  Serious: Yes (Death, Hospitalization)
  Sender: FDA-Public Use
  Company Number: CN-PFIZER INC-2007029917

PATIENT
  Sex: Female
  Weight: 49 kg

DRUGS (4)
  1. SU-011,248 [Suspect]
     Indication: GASTRIC CANCER
     Route: 048
     Dates: start: 20070330, end: 20070412
  2. INDOMETIN [Concomitant]
     Route: 048
     Dates: start: 20070402, end: 20070413
  3. GLYCERIN [Concomitant]
     Dates: start: 20070402, end: 20070402
  4. ANISODAMINE [Concomitant]
     Route: 030
     Dates: start: 20070402, end: 20070402

REACTIONS (2)
  - BRAIN HERNIATION [None]
  - PLATELET COUNT DECREASED [None]
